FAERS Safety Report 7215549-6 (Version None)
Quarter: 2011Q1

REPORT INFORMATION
  Report Type: 
  Country: None (occurrence: None)
  Receive Date: 20110107
  Receipt Date: 20110104
  Transmission Date: 20110831
  Serious: Yes (Death)
  Sender: FDA-Public Use
  Company Number: ID-ROCHE-748058

PATIENT
  Age: 35 Year
  Sex: Male
  Weight: 75 kg

DRUGS (12)
  1. ACETAMINOPHEN [Concomitant]
     Dates: start: 20100820, end: 20100822
  2. DEXAMETHASONE [Concomitant]
     Dates: start: 20100820, end: 20100821
  3. ONDANSETRON [Concomitant]
     Dates: start: 20100820, end: 20100822
  4. MIDAZOLAM HCL [Concomitant]
     Dates: start: 20100822, end: 20100827
  5. LEVOFLOXACIN [Concomitant]
     Dates: start: 20100820, end: 20100822
  6. METHYLPREDNISOLONE [Concomitant]
     Dates: start: 20100822, end: 20100823
  7. METHYLPREDNISOLONE [Concomitant]
     Dosage: TREATMENT OUTCOME: INCOMPLETE COURSE-DEATH
     Dates: start: 20100823, end: 20100826
  8. OXYGEN [Concomitant]
     Dosage: OXYGEN THERAPY, DELIVARY METHOD:NASAL CANULA, FLOW: LOW FLOW
     Dates: start: 20100821, end: 20100822
  9. CEFTRIAXONE [Concomitant]
     Dates: start: 20100822, end: 20100822
  10. MEROPENEM [Concomitant]
     Dates: start: 20100822, end: 20100827
  11. RANITIDINE [Concomitant]
     Dates: start: 20100820, end: 20100822
  12. OSELTAMIVIR [Suspect]
     Indication: AVIAN INFLUENZA
     Route: 065
     Dates: start: 20100826, end: 20100827

REACTIONS (1)
  - ACUTE RESPIRATORY DISTRESS SYNDROME [None]
